FAERS Safety Report 8153221-9 (Version None)
Quarter: 2012Q1

REPORT INFORMATION
  Report Type: 
  Country: None (occurrence: None)
  Receive Date: 20120221
  Receipt Date: 20120210
  Transmission Date: 20120608
  Serious: Yes (Other)
  Sender: FDA-Public Use
  Company Number: JP-TEVA-323186ISR

PATIENT
  Age: 55 Year
  Sex: Male

DRUGS (2)
  1. FLUOROURACIL [Suspect]
     Indication: OESOPHAGEAL CARCINOMA
     Dates: start: 20030101, end: 20030101
  2. CISPLATIN [Suspect]
     Indication: OESOPHAGEAL CARCINOMA
     Dates: start: 20030101, end: 20030101

REACTIONS (8)
  - POST PROCEDURAL COMPLICATION [None]
  - SPONDYLITIS [None]
  - OESOPHAGEAL FISTULA [None]
  - OESOPHAGEAL RUPTURE [None]
  - OESOPHAGEAL PERFORATION [None]
  - OESOPHAGEAL STENOSIS [None]
  - OESOPHAGEAL ULCER [None]
  - STAPHYLOCOCCUS TEST POSITIVE [None]
